FAERS Safety Report 23112214 (Version 4)
Quarter: 2023Q4

REPORT INFORMATION
  Report Type: Spontaneous
  Country: DE (occurrence: DE)
  Receive Date: 20231026
  Receipt Date: 20231223
  Transmission Date: 20240109
  Serious: Yes (Hospitalization, Other)
  Sender: FDA-Public Use
  Company Number: DE-ABBOTT-2023A-1371626

PATIENT
  Sex: Female

DRUGS (1)
  1. PANCRELIPASE [Suspect]
     Active Substance: PANCRELIPASE
     Indication: Pancreatic failure
     Dosage: SHE HAS BEEN TAKING THE PRODUCT KREON FOR 19 MONTHS AS OF 18-OCT-2023
     Route: 048
     Dates: start: 202203, end: 2023

REACTIONS (8)
  - Drug intolerance [Recovering/Resolving]
  - Gastrointestinal lymphoma [Unknown]
  - Diarrhoea [Recovered/Resolved]
  - Haemorrhage [Unknown]
  - Multimorbidity [Unknown]
  - Gastric cancer [Unknown]
  - Pseudomonas infection [Unknown]
  - Cystic fibrosis [Unknown]
